FAERS Safety Report 6946849-2 (Version None)
Quarter: 2010Q3

REPORT INFORMATION
  Report Type: 
  Country: None (occurrence: None)
  Receive Date: 20100827
  Receipt Date: 20090814
  Transmission Date: 20110219
  Serious: No
  Sender: FDA-Public Use
  Company Number: US-ABBOTT-09P-163-0592237-00

PATIENT
  Sex: Female
  Weight: 81.72 kg

DRUGS (13)
  1. NIASPAN [Suspect]
     Indication: ISCHAEMIC HEART DISEASE PROPHYLAXIS
  2. NIASPAN [Suspect]
  3. ALTACE [Concomitant]
     Indication: PRODUCT USED FOR UNKNOWN INDICATION
  4. HYDROCHLOROTHIAZIDE [Concomitant]
     Indication: PRODUCT USED FOR UNKNOWN INDICATION
  5. LEVOXYL [Concomitant]
     Indication: HYPOTHYROIDISM
  6. NORVASC [Concomitant]
     Indication: ISCHAEMIC HEART DISEASE PROPHYLAXIS
  7. PRAVACHOL [Concomitant]
     Indication: PRODUCT USED FOR UNKNOWN INDICATION
  8. TOPROL-XL [Concomitant]
     Indication: PRODUCT USED FOR UNKNOWN INDICATION
  9. ZETIA [Concomitant]
     Indication: PRODUCT USED FOR UNKNOWN INDICATION
  10. ASPIRIN [Concomitant]
     Indication: PRODUCT USED FOR UNKNOWN INDICATION
  11. FISH OIL [Concomitant]
     Indication: PRODUCT USED FOR UNKNOWN INDICATION
  12. CALCIUM CARBONATE [Concomitant]
     Indication: PRODUCT USED FOR UNKNOWN INDICATION
  13. METRONIX INSULIN PUMP [Concomitant]
     Indication: DIABETES MELLITUS

REACTIONS (2)
  - FLUSHING [None]
  - PRURITUS [None]
